FAERS Safety Report 5817519-9 (Version None)
Quarter: 2008Q3

REPORT INFORMATION
  Report Type: 
  Country: None (occurrence: None)
  Receive Date: 20080722
  Receipt Date: 20080711
  Transmission Date: 20090109
  Serious: Yes (Other)
  Sender: FDA-Public Use
  Company Number: US-JNJFOC-20080703518

PATIENT
  Sex: Female

DRUGS (4)
  1. TOPAMAX [Suspect]
     Route: 048
  2. TOPAMAX [Suspect]
     Indication: MIGRAINE PROPHYLAXIS
     Route: 048
  3. THYROID MEDICINE [Concomitant]
     Indication: THYROID DISORDER
  4. AMBIEN [Concomitant]
     Indication: SLEEP DISORDER

REACTIONS (7)
  - BREAST CANCER FEMALE [None]
  - DIZZINESS [None]
  - DRUG ADMINISTRATION ERROR [None]
  - DRUG INEFFECTIVE [None]
  - DYSPNOEA [None]
  - MIGRAINE [None]
  - SOMNOLENCE [None]
